FAERS Safety Report 9974616 (Version 1)
Quarter: 2014Q1

REPORT INFORMATION
  Report Type: Report from Study
  Country: US (occurrence: US)
  Receive Date: 20140306
  Receipt Date: 20140306
  Transmission Date: 20141002
  Serious: No
  Sender: FDA-Public Use
  Company Number: US-ABBVIE-13P-163-1157298-00

PATIENT
  Age: 55 Year
  Sex: Male

DRUGS (8)
  1. HUMIRA [Suspect]
     Indication: PSORIASIS
     Dates: start: 201305
  2. OMEPRAZOLE [Concomitant]
     Indication: GASTROOESOPHAGEAL REFLUX DISEASE
  3. VIAGRA [Concomitant]
     Indication: PRODUCT USED FOR UNKNOWN INDICATION
  4. LISINOPRIL AND HYDROCHLOROTHIAZIDE [Concomitant]
     Indication: HYPERTENSION
  5. CALCIPOTRIENE [Concomitant]
     Indication: PSORIASIS
     Dosage: PRESCRIBED DAILY BUT TAKES EVERY 6 TO 7 WEEKS
  6. ALEVE [Concomitant]
     Indication: PAIN
     Dosage: ALTERNATING DAYS WITH ASPIRIN
  7. ASPIRIN [Concomitant]
     Indication: PAIN
     Dosage: ALTERNATING DAYS WITH ALEVE
  8. CLOBEX [Concomitant]
     Indication: PSORIASIS
     Dosage: PRESCRIBED DAILY, BUT TAKES EVERY FEW WEEKS

REACTIONS (6)
  - Joint injury [Recovered/Resolved]
  - Joint swelling [Recovered/Resolved]
  - Arthralgia [Recovered/Resolved]
  - Joint swelling [Not Recovered/Not Resolved]
  - Arthralgia [Not Recovered/Not Resolved]
  - Contusion [Not Recovered/Not Resolved]
